FAERS Safety Report 6511189-2 (Version None)
Quarter: 2009Q4

REPORT INFORMATION
  Report Type: 
  Country: None (occurrence: None)
  Receive Date: 20091217
  Receipt Date: 20091209
  Transmission Date: 20100525
  Serious: Yes (Hospitalization)
  Sender: FDA-Public Use
  Company Number: 8053760

PATIENT
  Sex: Female

DRUGS (2)
  1. CERTOLIZUMAB PEGOL [Suspect]
     Dosage: SUBCUTANEOUS, 200 MG EVERY 2 WEEKS SUBCUTANEOUS
     Route: 058
     Dates: start: 20090220
  2. CERTOLIZUMAB PEGOL [Suspect]
     Dosage: SUBCUTANEOUS, 200 MG EVERY 2 WEEKS SUBCUTANEOUS
     Route: 058
     Dates: start: 20091209

REACTIONS (2)
  - PANCREATITIS ACUTE [None]
  - URINARY TRACT INFECTION [None]
